FAERS Safety Report 21630935 (Version 2)
Quarter: 2022Q4

REPORT INFORMATION
  Report Type: Spontaneous
  Country: FR (occurrence: FR)
  Receive Date: 20221123
  Receipt Date: 20221129
  Transmission Date: 20230113
  Serious: Yes (Hospitalization, Other)
  Sender: FDA-Public Use
  Company Number: FR-AFSSAPS-NC20223011

PATIENT
  Age: 73 Year
  Sex: Female
  Weight: 38 kg

DRUGS (5)
  1. AMOXICILLIN [Suspect]
     Active Substance: AMOXICILLIN
     Indication: Lung disorder
     Dosage: 6 GRAM, ONCE A DAY
     Route: 048
     Dates: start: 20220822, end: 20220828
  2. AUGMENTIN [Suspect]
     Active Substance: AMOXICILLIN\CLAVULANATE POTASSIUM
     Indication: Lung disorder
     Dosage: 3 GRAM, ONCE A DAY
     Route: 048
     Dates: start: 20220814, end: 20220815
  3. CEFEPIME [Suspect]
     Active Substance: CEFEPIME HYDROCHLORIDE
     Indication: Lung disorder
     Dosage: 4 GRAM, ONCE A DAY
     Route: 042
     Dates: start: 20220829, end: 20220902
  4. CEFOTAXIME [Suspect]
     Active Substance: CEFOTAXIME SODIUM
     Indication: Lung disorder
     Dosage: UNK (NOT SPECIFIED)
     Route: 042
     Dates: start: 20220816, end: 20220821
  5. SPIRAMYCIN [Suspect]
     Active Substance: SPIRAMYCIN
     Indication: Lung disorder
     Dosage: UNK (NOT SPECIFIED)
     Route: 042
     Dates: start: 20220816, end: 20220821

REACTIONS (1)
  - Clostridium difficile infection [Recovered/Resolved]

NARRATIVE: CASE EVENT DATE: 20220901
